FAERS Safety Report 4575689-7 (Version None)
Quarter: 2005Q1

REPORT INFORMATION
  Report Type: 
  Country: None (occurrence: None)
  Receive Date: 20050128
  Receipt Date: 20050128
  Transmission Date: 20050727
  Serious: No
  Sender: FDA-Public Use
  Company Number: None

PATIENT
  Sex: Female

DRUGS (2)
  1. REMERON [Suspect]
     Indication: MAJOR DEPRESSION
     Dosage: 30 MG 2 Q HS PO [LONG-TERM (} 1 YEAR)
     Route: 048
  2. REMERON [Suspect]
     Indication: PANIC DISORDER
     Dosage: 30 MG 2 Q HS PO [LONG-TERM (} 1 YEAR)
     Route: 048

REACTIONS (1)
  - DRUG INEFFECTIVE [None]
